FAERS Safety Report 10204613 (Version 1)
Quarter: 2014Q2

REPORT INFORMATION
  Report Type: Spontaneous
  Country: US (occurrence: None)
  Receive Date: 20140527
  Receipt Date: 20140527
  Transmission Date: 20141212
  Serious: Yes (Life-Threatening)
  Sender: FDA-Public Use
  Company Number: None

PATIENT
  Sex: 0

DRUGS (1)
  1. DULOXETINE [Suspect]
     Route: 048

REACTIONS (8)
  - Agitation [None]
  - Suicidal ideation [None]
  - Feeling of despair [None]
  - Fall [None]
  - Depression [None]
  - Product substitution issue [None]
  - Product substitution issue [None]
  - Product quality issue [None]
